FAERS Safety Report 10272596 (Version 3)
Quarter: 2015Q1

REPORT INFORMATION
  Report Type: Spontaneous
  Country: JP (occurrence: JP)
  Receive Date: 20140702
  Receipt Date: 20150210
  Transmission Date: 20150720
  Serious: Yes (Hospitalization)
  Sender: FDA-Public Use
  Company Number: JP-JNJFOC-20140619241

PATIENT
  Age: 5 Decade
  Sex: Female

DRUGS (8)
  1. CONTOMIN [Concomitant]
     Active Substance: CHLORPROMAZINE
     Route: 065
  2. MAGMITT [Concomitant]
     Active Substance: MAGNESIUM OXIDE
     Route: 048
  3. HIBERNA [Concomitant]
     Active Substance: PROMETHAZINE HYDROCHLORIDE
     Route: 065
  4. INVEGA [Suspect]
     Active Substance: PALIPERIDONE
     Indication: SCHIZOPHRENIA
     Dosage: 12 MG ONCE  ADAY
     Route: 048
     Dates: start: 2014, end: 20140611
  5. FLUNITRAZEPAM [Concomitant]
     Active Substance: FLUNITRAZEPAM
     Route: 065
  6. BENZALIN [Concomitant]
     Active Substance: NITRAZEPAM
     Route: 048
  7. ZYPREXA [Concomitant]
     Active Substance: OLANZAPINE
     Route: 065
  8. BICAMOL [Concomitant]
     Active Substance: BIPERIDEN HYDROCHLORIDE
     Route: 048

REACTIONS (3)
  - Urine output increased [Recovered/Resolved]
  - Pneumonia aspiration [Recovering/Resolving]
  - Dysphagia [Recovering/Resolving]

NARRATIVE: CASE EVENT DATE: 2014
